FAERS Safety Report 8032964-1 (Version None)
Quarter: 2011Q4

REPORT INFORMATION
  Report Type: 
  Country: None (occurrence: None)
  Receive Date: 20111223
  Receipt Date: 20111214
  Transmission Date: 20120403
  Serious: Yes (Disabling, Other)
  Sender: FDA-Public Use
  Company Number: ACO_28486_2011

PATIENT
  Age: 64 Year
  Sex: Male
  Weight: 88.9 kg

DRUGS (4)
  1. AMPYRA [Suspect]
     Indication: GAIT DISTURBANCE
     Dosage: 10 MG, BID, ORAL; 10 MG, BID, ORAL
     Route: 048
     Dates: start: 20110514, end: 20110601
  2. AMPYRA [Suspect]
     Indication: GAIT DISTURBANCE
     Dosage: 10 MG, BID, ORAL; 10 MG, BID, ORAL
     Route: 048
     Dates: start: 20111006, end: 20111207
  3. INSULIN [Concomitant]
  4. BACLOFEN [Concomitant]

REACTIONS (5)
  - ABDOMINAL DISCOMFORT [None]
  - BALANCE DISORDER [None]
  - MALAISE [None]
  - MUSCULAR WEAKNESS [None]
  - DEPRESSION [None]
